FAERS Safety Report 5028817-3 (Version None)
Quarter: 2006Q2

REPORT INFORMATION
  Report Type: 
  Country: None (occurrence: None)
  Receive Date: 20060619
  Receipt Date: 20060607
  Transmission Date: 20061013
  Serious: Yes (Hospitalization)
  Sender: FDA-Public Use
  Company Number: FR-BRISTOL-MYERS SQUIBB COMPANY-13405808

PATIENT
  Age: 69 Year
  Sex: Female

DRUGS (6)
  1. ELISOR TABS [Suspect]
     Indication: HYPERCHOLESTEROLAEMIA
     Route: 048
  2. VASTEN [Suspect]
     Route: 048
  3. ZOCOR [Suspect]
     Route: 048
  4. TAHOR [Suspect]
     Route: 048
     Dates: start: 20030101
  5. VITAMIN E [Concomitant]
  6. TOCO [Concomitant]

REACTIONS (2)
  - INTERSTITIAL LUNG DISEASE [None]
  - URTICARIA [None]
